FAERS Safety Report 7910733-8 (Version None)
Quarter: 2011Q4

REPORT INFORMATION
  Report Type: 
  Country: None (occurrence: None)
  Receive Date: 20111112
  Receipt Date: 20111102
  Transmission Date: 20120403
  Serious: Yes (Hospitalization, Other)
  Sender: FDA-Public Use
  Company Number: AT-ASTRAZENECA-2011SE56123

PATIENT
  Age: 20476 Day
  Sex: Male

DRUGS (11)
  1. SIMVASTATIN [Concomitant]
     Route: 048
  2. PANTOPRAZOLE SODIUM [Concomitant]
     Route: 048
  3. EFFEXOR XR [Concomitant]
     Indication: DEPRESSION
     Route: 048
  4. AMLODIPINE GENERICUM [Concomitant]
     Route: 048
  5. CONCOR [Concomitant]
     Route: 048
     Dates: end: 20110101
  6. TRITTICO RET [Concomitant]
     Indication: DEPRESSION
     Route: 048
  7. XEFO [Concomitant]
     Indication: SPONDYLOARTHROPATHY
     Route: 048
  8. IRESSA [Suspect]
     Indication: LUNG NEOPLASM
     Route: 048
     Dates: start: 20110813
  9. ASPIRIN [Concomitant]
     Route: 048
  10. ACECOMB [Concomitant]
     Dosage: 10/12.5 MG
     Route: 048
  11. NEUROFENAC [Concomitant]
     Indication: SPONDYLOARTHROPATHY
     Route: 048

REACTIONS (3)
  - OEDEMA PERIPHERAL [None]
  - HYPOTENSION [None]
  - WEIGHT INCREASED [None]
